FAERS Safety Report 6547947-8 (Version None)
Quarter: 2010Q1

REPORT INFORMATION
  Report Type: 
  Country: None (occurrence: None)
  Receive Date: 20100124
  Receipt Date: 20091116
  Transmission Date: 20100710
  Serious: Yes (Hospitalization)
  Sender: FDA-Public Use
  Company Number: US-ALEXION-A200900952

PATIENT

DRUGS (10)
  1. SOLIRIS [Suspect]
     Indication: PAROXYSMAL NOCTURNAL HAEMOGLOBINURIA
     Dosage: 600 MG, QW
     Route: 042
     Dates: start: 20090803
  2. SOLIRIS [Suspect]
     Dosage: 900 MG, Q2W
     Route: 042
     Dates: start: 20090831, end: 20091028
  3. COUMADIN [Concomitant]
     Dosage: UNK
     Route: 048
  4. OXYCONTIN [Concomitant]
     Dosage: 20 MG, BID
     Route: 048
  5. NEURONTIN [Concomitant]
     Dosage: 300 MG, TID
     Route: 048
  6. LORAZEPAM [Concomitant]
     Dosage: 0.5 MG, 2-3 QHS
     Route: 048
  7. ALBUTEROL [Concomitant]
     Dosage: 2 PUFFS Q4H PRN
     Route: 055
  8. OMEPRAZOLE [Concomitant]
     Dosage: 20 MG, BID
     Route: 048
  9. NITROGLYCERIN [Concomitant]
     Dosage: PRN
     Route: 048
  10. HYDROCHLOROTHIAZIDE [Concomitant]
     Dosage: 12.5 MG, QD
     Route: 048

REACTIONS (6)
  - CHROMATURIA [None]
  - DRUG INEFFECTIVE [None]
  - DYSPNOEA [None]
  - FATIGUE [None]
  - PAIN [None]
  - RENAL PAIN [None]
